FAERS Safety Report 22007730 (Version 1)
Quarter: 2023Q1

REPORT INFORMATION
  Report Type: Spontaneous
  Country: US (occurrence: US)
  Receive Date: 20230218
  Receipt Date: 20230218
  Transmission Date: 20230417
  Serious: No
  Sender: FDA-Public Use
  Company Number: US-002147023-NVSC2023US036104

PATIENT
  Sex: Female

DRUGS (2)
  1. DUREZOL [Suspect]
     Active Substance: DIFLUPREDNATE
     Indication: Product used for unknown indication
     Dosage: UNK
     Route: 065
  2. DIFLUPREDNATE [Suspect]
     Active Substance: DIFLUPREDNATE
     Indication: Product used for unknown indication
     Dosage: UNK
     Route: 047

REACTIONS (2)
  - Ocular hyperaemia [Unknown]
  - Eye pruritus [Unknown]
